FAERS Safety Report 12496880 (Version 1)
Quarter: 2016Q2

REPORT INFORMATION
  Report Type: Other
  Country: BE (occurrence: BE)
  Receive Date: 20160624
  Receipt Date: 20160624
  Transmission Date: 20160815
  Serious: Yes (Other)
  Sender: FDA-Public Use
  Company Number: BE-PURDUE-DEU-2016-0018102

PATIENT
  Age: 44 Year
  Sex: Female

DRUGS (2)
  1. NON-PMN MORPHINE SULFATE [Suspect]
     Active Substance: MORPHINE SULFATE
     Indication: BACK PAIN
     Route: 037
  2. NON-PMN MORPHINE SULFATE [Suspect]
     Active Substance: MORPHINE SULFATE
     Indication: PELVIC PAIN

REACTIONS (2)
  - Neuralgia [Recovered/Resolved]
  - Headache [Recovered/Resolved]
